FAERS Safety Report 5501216-3 (Version None)
Quarter: 2007Q4

REPORT INFORMATION
  Report Type: 
  Country: None (occurrence: None)
  Receive Date: 20071029
  Receipt Date: 20071017
  Transmission Date: 20080405
  Serious: Yes (Other)
  Sender: FDA-Public Use
  Company Number: US-PFIZER INC-2007087853

PATIENT
  Sex: Female
  Weight: 67.272 kg

DRUGS (3)
  1. CHANTIX [Suspect]
     Indication: SMOKING CESSATION THERAPY
     Dates: start: 20071001, end: 20071005
  2. TYLENOL (CAPLET) [Concomitant]
  3. PRILOSEC [Concomitant]

REACTIONS (4)
  - FATIGUE [None]
  - IRRITABILITY [None]
  - MENOPAUSE [None]
  - SURGERY [None]
